FAERS Safety Report 9703101 (Version 2)
Quarter: 2013Q4

REPORT INFORMATION
  Report Type: Spontaneous
  Country: US (occurrence: US)
  Receive Date: 20131122
  Receipt Date: 20131204
  Transmission Date: 20140711
  Serious: No
  Sender: FDA-Public Use
  Company Number: US-BIOGENIDEC-2013BI107934

PATIENT
  Age: 57 Year
  Sex: Female

DRUGS (11)
  1. AVONEX [Suspect]
     Indication: RELAPSING-REMITTING MULTIPLE SCLEROSIS
     Route: 030
     Dates: start: 20131004
  2. AVONEX [Suspect]
     Indication: RELAPSING-REMITTING MULTIPLE SCLEROSIS
     Route: 030
     Dates: start: 20131007
  3. RANITIDIN [Concomitant]
     Indication: HIATUS HERNIA
     Route: 048
     Dates: start: 20101001
  4. BACLOFEN [Concomitant]
     Indication: MUSCLE SPASMS
     Route: 048
     Dates: start: 20101001
  5. FUROSEMIDE [Concomitant]
     Indication: FLUID RETENTION
     Route: 048
     Dates: start: 20101001
  6. POTASSIUM CHLORIDE [Concomitant]
     Indication: DIURETIC THERAPY
     Route: 048
     Dates: start: 20101001
  7. VALTREX [Concomitant]
     Indication: HERPES ZOSTER
     Route: 048
     Dates: start: 20031001
  8. VITAMIN B-12 [Concomitant]
     Indication: ROUTINE HEALTH MAINTENANCE
     Route: 048
     Dates: start: 20121001
  9. VITAMIN D3 [Concomitant]
     Route: 048
     Dates: start: 20121001
  10. LISINOPRIL [Concomitant]
     Indication: HYPERTENSION
     Route: 048
     Dates: start: 20101001
  11. SYNTHROID [Concomitant]
     Indication: HYPOTHYROIDISM
     Route: 048
     Dates: start: 20101001

REACTIONS (9)
  - Underdose [Recovered/Resolved]
  - Injection site haemorrhage [Recovered/Resolved]
  - Nervousness [Unknown]
  - Inappropriate schedule of drug administration [Unknown]
  - Skin haemorrhage [Unknown]
  - Injection site bruising [Recovered/Resolved]
  - Anxiety [Recovered/Resolved]
  - Chills [Recovered/Resolved]
  - Pain in extremity [Recovered/Resolved]
